FAERS Safety Report 5117391-9 (Version None)
Quarter: 2006Q3

REPORT INFORMATION
  Report Type: 
  Country: None (occurrence: None)
  Receive Date: 20060929
  Receipt Date: 20060918
  Transmission Date: 20061208
  Serious: Yes (Death, Hospitalization)
  Sender: FDA-Public Use
  Company Number: US-JNJFOC-20060301248

PATIENT
  Age: 40 Year
  Sex: Female
  Weight: 113.4 kg

DRUGS (9)
  1. DURAGESIC-100 [Suspect]
     Route: 062
  2. DURAGESIC-100 [Suspect]
     Indication: PAIN
     Route: 062
  3. KLONOPIN [Concomitant]
     Route: 048
  4. KLONOPIN [Concomitant]
     Route: 048
  5. REMERON [Concomitant]
  6. LEXAPRO [Concomitant]
  7. LEXAPRO [Concomitant]
  8. GABITRIL [Concomitant]
     Dosage: 4 MG IN THE A.M. AND 8 MG IN AT NIGHT
  9. ACTIQ [Concomitant]
     Indication: PAIN
     Dosage: 4 TO 5 DAILY AS NEEDED, ORAL

REACTIONS (4)
  - DEVICE FAILURE [None]
  - MAJOR DEPRESSION [None]
  - OVERDOSE [None]
  - RESPIRATORY FAILURE [None]
